FAERS Safety Report 9344662 (Version 1)
Quarter: 2013Q2

REPORT INFORMATION
  Report Type: Spontaneous
  Country: US (occurrence: None)
  Receive Date: 20130611
  Receipt Date: 20130611
  Transmission Date: 20140414
  Serious: Yes (Life-Threatening, Hospitalization)
  Sender: FDA-Public Use
  Company Number: None

PATIENT
  Age: 67 Year
  Sex: Male

DRUGS (2)
  1. TRAMADOL [Suspect]
     Indication: PAIN
     Route: 048
     Dates: start: 20130115, end: 20130122
  2. BACLOFEN [Suspect]
     Indication: PAIN
     Route: 048
     Dates: start: 20130115, end: 20130122

REACTIONS (5)
  - Syncope [None]
  - Headache [None]
  - Sedation [None]
  - Nausea [None]
  - Vomiting [None]
